FAERS Safety Report 4542797-6 (Version None)
Quarter: 2004Q4

REPORT INFORMATION
  Report Type: 
  Country: None (occurrence: None)
  Receive Date: 20041229
  Receipt Date: 20041222
  Transmission Date: 20050328
  Serious: Yes (Hospitalization)
  Sender: FDA-Public Use
  Company Number: USA-2004-0018131

PATIENT
  Sex: Female

DRUGS (1)
  1. SPECTRACEF [Suspect]
     Indication: UPPER RESPIRATORY TRACT INFECTION

REACTIONS (4)
  - CLOSTRIDIUM COLITIS [None]
  - DEHYDRATION [None]
  - DIARRHOEA [None]
  - VOMITING [None]
